FAERS Safety Report 4286257-9 (Version None)
Quarter: 2004Q1

REPORT INFORMATION
  Report Type: 
  Country: None (occurrence: None)
  Receive Date: 20040205
  Receipt Date: 20040205
  Transmission Date: 20041129
  Serious: Yes (Other)
  Sender: FDA-Public Use
  Company Number: None

PATIENT
  Age: 77 Year
  Sex: Male
  Weight: 60.3284 kg

DRUGS (2)
  1. NEURONTIN [Suspect]
     Indication: NEUROPATHIC PAIN
     Dosage: 300 MG PO TID
     Route: 048
     Dates: start: 20031205
  2. LISINOPRIL [Concomitant]

REACTIONS (2)
  - PRURITUS [None]
  - RASH [None]
